FAERS Safety Report 11851850 (Version 3)
Quarter: 2016Q1

REPORT INFORMATION
  Report Type: Spontaneous
  Country: US (occurrence: US)
  Receive Date: 20151218
  Receipt Date: 20160328
  Transmission Date: 20160526
  Serious: Yes (Other)
  Sender: FDA-Public Use
  Company Number: US-GLAXOSMITHKLINE-US2015GSK177901

PATIENT
  Sex: Female

DRUGS (5)
  1. SEREVENT DISKUS [Suspect]
     Active Substance: SALMETEROL XINAFOATE
     Indication: ANAPHYLACTIC REACTION
     Dosage: UNK
     Dates: start: 1975
  2. SEREVENT DISKUS [Suspect]
     Active Substance: SALMETEROL XINAFOATE
     Indication: ADVERSE DRUG REACTION
  3. SYMBICORT [Suspect]
     Active Substance: BUDESONIDE\FORMOTEROL FUMARATE DIHYDRATE
  4. FLOVENT [Suspect]
     Active Substance: FLUTICASONE PROPIONATE
     Dosage: UNK
     Dates: start: 1975
  5. NASONEX [Suspect]
     Active Substance: MOMETASONE FUROATE

REACTIONS (6)
  - Total lung capacity decreased [Unknown]
  - Visual acuity reduced [Unknown]
  - Lacrimation increased [Unknown]
  - Drug hypersensitivity [Unknown]
  - Drug interaction [Unknown]
  - Macular degeneration [Unknown]

NARRATIVE: CASE EVENT DATE: 2012
